FAERS Safety Report 5748824-2 (Version None)
Quarter: 2008Q2

REPORT INFORMATION
  Report Type: 
  Country: None (occurrence: None)
  Receive Date: 20080522
  Receipt Date: 20080505
  Transmission Date: 20081010
  Serious: Yes (Hospitalization)
  Sender: FDA-Public Use
  Company Number: 2008AL003375

PATIENT
  Age: 49 Year
  Sex: Female

DRUGS (3)
  1. DIGOXIN [Suspect]
     Indication: CARDIAC FAILURE CONGESTIVE
     Dosage: 0.25 MG DAILY PO
     Route: 048
     Dates: start: 20000301
  2. COREG [Concomitant]
  3. ENALAPRIL MALEATE [Concomitant]

REACTIONS (1)
  - LOSS OF CONSCIOUSNESS [None]
